FAERS Safety Report 6210624-7 (Version None)
Quarter: 2009Q2

REPORT INFORMATION
  Report Type: 
  Country: None (occurrence: None)
  Receive Date: 20090529
  Receipt Date: 20090529
  Transmission Date: 20091009
  Serious: No
  Sender: FDA-Public Use
  Company Number: None

PATIENT
  Age: 19 Year
  Sex: Female
  Weight: 69.4003 kg

DRUGS (1)
  1. YAZ [Suspect]
     Indication: ACNE
     Dosage: 1 PILL DAILY
     Dates: start: 20090503, end: 20090527

REACTIONS (15)
  - AGGRESSION [None]
  - ANGER [None]
  - ANXIETY [None]
  - CHILLS [None]
  - CRYING [None]
  - DECREASED APPETITE [None]
  - DEPRESSION [None]
  - DYSPNOEA [None]
  - FEELING ABNORMAL [None]
  - MIGRAINE [None]
  - MOOD SWINGS [None]
  - NAUSEA [None]
  - NEGLECT OF PERSONAL APPEARANCE [None]
  - SOCIAL AVOIDANT BEHAVIOUR [None]
  - UNEVALUABLE EVENT [None]
